FAERS Safety Report 19979377 (Version 1)
Quarter: 2021Q4

REPORT INFORMATION
  Report Type: Spontaneous
  Country: US (occurrence: US)
  Receive Date: 20211021
  Receipt Date: 20211021
  Transmission Date: 20220303
  Serious: Yes (Other)
  Sender: FDA-Public Use
  Company Number: None

PATIENT
  Age: 90 Year
  Sex: Female
  Weight: 64.53 kg

DRUGS (3)
  1. BAMLANIVIMAB [Suspect]
     Active Substance: BAMLANIVIMAB
     Indication: COVID-19
     Dosage: ?          OTHER FREQUENCY:ONE TIME;
     Route: 041
     Dates: start: 20211015, end: 20211015
  2. ETESEVIMAB [Suspect]
     Active Substance: ETESEVIMAB
     Indication: COVID-19
     Dosage: ?          OTHER FREQUENCY:ONE TIME;
     Route: 041
     Dates: start: 20211015, end: 20211015
  3. NS 100 mL per EUA [Concomitant]
     Dates: start: 20211015, end: 20211015

REACTIONS (2)
  - Wrong technique in product usage process [None]
  - Oxygen saturation decreased [None]

NARRATIVE: CASE EVENT DATE: 20211015
